FAERS Safety Report 6034498-2 (Version None)
Quarter: 2009Q1

REPORT INFORMATION
  Report Type: 
  Country: None (occurrence: None)
  Receive Date: 20090108
  Receipt Date: 20090108
  Transmission Date: 20090719
  Serious: Yes (Other)
  Sender: FDA-Public Use
  Company Number: None

PATIENT
  Age: 46 Year
  Sex: Male
  Weight: 72.5755 kg

DRUGS (2)
  1. CIPROFLOXACIN [Suspect]
     Indication: ANAL ABSCESS
     Dosage: 2 TABLETS DAILY FOR 30 DAYS PO
     Route: 048
     Dates: start: 20081118, end: 20081123
  2. LEVAQUIN [Suspect]
     Indication: ANAL ABSCESS
     Dosage: 1 TABLET ALSO BY IV FOR 3 DAYS
     Route: 042
     Dates: start: 20081112, end: 20081118

REACTIONS (34)
  - ANXIETY [None]
  - ARTHRALGIA [None]
  - ASTHENIA [None]
  - DEPRESSION [None]
  - DIARRHOEA [None]
  - DISTURBANCE IN ATTENTION [None]
  - DIZZINESS [None]
  - DYSPHONIA [None]
  - ERECTILE DYSFUNCTION [None]
  - HEADACHE [None]
  - HEART RATE INCREASED [None]
  - INSOMNIA [None]
  - JOINT STIFFNESS [None]
  - MALAISE [None]
  - MALE ORGASMIC DISORDER [None]
  - MUSCLE SPASMS [None]
  - MUSCLE TWITCHING [None]
  - MUSCULOSKELETAL STIFFNESS [None]
  - MYALGIA [None]
  - MYODESOPSIA [None]
  - NEUROPATHY PERIPHERAL [None]
  - NIGHTMARE [None]
  - PAIN IN JAW [None]
  - PULSE PRESSURE INCREASED [None]
  - SKIN ATROPHY [None]
  - SUICIDAL IDEATION [None]
  - SWELLING [None]
  - TENDON DISORDER [None]
  - TENDONITIS [None]
  - TINNITUS [None]
  - TOOTHACHE [None]
  - TREMOR [None]
  - VISION BLURRED [None]
  - WEIGHT DECREASED [None]
